FAERS Safety Report 23165817 (Version 2)
Quarter: 2023Q4

REPORT INFORMATION
  Report Type: Spontaneous
  Country: US (occurrence: US)
  Receive Date: 20231109
  Receipt Date: 20231124
  Transmission Date: 20240110
  Serious: Yes (Hospitalization)
  Sender: FDA-Public Use
  Company Number: US-TEVA-2023-US-2942199

PATIENT
  Age: 66 Year
  Sex: Female

DRUGS (10)
  1. TRAMADOL [Suspect]
     Active Substance: TRAMADOL\TRAMADOL HYDROCHLORIDE
     Indication: Pain
     Route: 065
  2. TRAMADOL [Suspect]
     Active Substance: TRAMADOL\TRAMADOL HYDROCHLORIDE
     Indication: Cancer pain
  3. MORPHINE [Suspect]
     Active Substance: MORPHINE
     Indication: Pain
     Route: 048
  4. MORPHINE [Suspect]
     Active Substance: MORPHINE
     Indication: Cancer pain
  5. FENTANYL [Suspect]
     Active Substance: FENTANYL\FENTANYL CITRATE
     Indication: Pain
     Route: 062
  6. FENTANYL [Suspect]
     Active Substance: FENTANYL\FENTANYL CITRATE
     Indication: Cancer pain
     Dosage: 75 MG AS NEEDED
     Route: 042
  7. LIDOCAINE [Suspect]
     Active Substance: LIDOCAINE
     Indication: Pain
     Dosage: DOSE: 1 TO 2 MG PER KG PER HOUR
     Route: 041
  8. LIDOCAINE [Suspect]
     Active Substance: LIDOCAINE
     Indication: Cancer pain
  9. HYDROMORPHONE [Concomitant]
     Active Substance: HYDROMORPHONE
     Indication: Pain
     Dosage: 75 MG AS NEEDED
     Route: 042
  10. HYDROMORPHONE [Concomitant]
     Active Substance: HYDROMORPHONE
     Indication: Cancer pain

REACTIONS (3)
  - Treatment failure [Unknown]
  - Nausea [Unknown]
  - Chest pain [Unknown]
